FAERS Safety Report 5900005-5 (Version None)
Quarter: 2008Q3

REPORT INFORMATION
  Report Type: 
  Country: None (occurrence: None)
  Receive Date: 20080926
  Receipt Date: 20080919
  Transmission Date: 20090109
  Serious: Yes (Hospitalization)
  Sender: FDA-Public Use
  Company Number: BR-ABBOTT-08P-020-0459933-00

PATIENT
  Sex: Female
  Weight: 57 kg

DRUGS (9)
  1. SYNTHROID [Suspect]
     Indication: HYPOTHYROIDISM
     Route: 048
  2. SYNTHROID [Suspect]
     Dates: start: 20080301
  3. ACETYLSALICYLIC ACID SRT [Concomitant]
     Indication: BLOOD PRESSURE INCREASED
     Route: 048
  4. ATENOLOL [Concomitant]
     Indication: BLOOD PRESSURE INCREASED
     Route: 048
  5. CHLORTHALIDONE [Concomitant]
     Indication: BLOOD PRESSURE INCREASED
     Route: 048
  6. CLOPIDOGREL [Concomitant]
     Indication: STENT PLACEMENT
     Route: 048
  7. LOSARTAN [Concomitant]
     Indication: BLOOD PRESSURE INCREASED
     Route: 048
  8. ROSUVASTATIN [Concomitant]
     Indication: BLOOD TRIGLYCERIDES INCREASED
     Route: 048
  9. OMEPRAZOLE [Concomitant]
     Indication: PROPHYLAXIS AGAINST GASTROINTESTINAL ULCER
     Route: 048

REACTIONS (4)
  - BLOOD PRESSURE INCREASED [None]
  - DIZZINESS [None]
  - HEADACHE [None]
  - PYREXIA [None]
